FAERS Safety Report 8215147-1 (Version None)
Quarter: 2012Q1

REPORT INFORMATION
  Report Type: 
  Country: None (occurrence: None)
  Receive Date: 20120316
  Receipt Date: 20120307
  Transmission Date: 20120608
  Serious: Yes (Other)
  Sender: FDA-Public Use
  Company Number: US-BAYER-2012-025173

PATIENT
  Age: 57 Year
  Sex: Male
  Weight: 99.79 kg

DRUGS (7)
  1. XARELTO [Suspect]
     Indication: ATRIAL FIBRILLATION
     Dosage: 20 MG, HS
     Route: 048
     Dates: start: 20120212
  2. DARVON [Concomitant]
     Indication: BLOOD PRESSURE MANAGEMENT
     Dosage: 160 MG, HS
     Route: 048
     Dates: start: 20110201
  3. LIPITOR [Concomitant]
     Indication: BLOOD CHOLESTEROL ABNORMAL
     Dosage: 20 MG, HS
     Route: 048
     Dates: start: 20110201
  4. AMIODARONE HYDROCHLORIDE [Suspect]
     Indication: ATRIAL FIBRILLATION
     Dosage: 200 MG, BID
     Route: 048
     Dates: start: 20120212
  5. ASPIRIN [Suspect]
     Indication: PROPHYLAXIS
     Dosage: 81 MG, HS
     Route: 048
     Dates: start: 20110220
  6. LEVOTHYROXINE SODIUM [Concomitant]
     Indication: THYROID DISORDER
     Dosage: .05 MG, HS
     Route: 048
  7. METOPROLOL SUCCINATE [Concomitant]
     Indication: BLOOD PRESSURE MANAGEMENT
     Dates: start: 20110101

REACTIONS (1)
  - CHROMATURIA [None]
